FAERS Safety Report 4927536-9 (Version None)
Quarter: 2006Q1

REPORT INFORMATION
  Report Type: 
  Country: None (occurrence: None)
  Receive Date: 20060213
  Receipt Date: 20060131
  Transmission Date: 20060701
  Serious: Yes (Other)
  Sender: FDA-Public Use
  Company Number: FRWYE190629NOV05

PATIENT
  Age: 3 Year
  Sex: Male

DRUGS (7)
  1. REFACTO [Suspect]
     Indication: FACTOR VIII DEFICIENCY
     Dosage: CURATIVE REGIMEN: FROM 250 IU 3 TIMES DAILY TO 250 IU EVERY OTHER DAY INTRAVENOUS; SEE IMAGE
     Route: 042
     Dates: start: 20010713, end: 20010902
  2. REFACTO [Suspect]
     Indication: FACTOR VIII DEFICIENCY
     Dosage: CURATIVE REGIMEN: FROM 250 IU 3 TIMES DAILY TO 250 IU EVERY OTHER DAY INTRAVENOUS; SEE IMAGE
     Route: 042
     Dates: start: 20010903, end: 20041201
  3. REFACTO [Suspect]
     Indication: FACTOR VIII DEFICIENCY
     Dosage: CURATIVE REGIMEN: FROM 250 IU 3 TIMES DAILY TO 250 IU EVERY OTHER DAY INTRAVENOUS; SEE IMAGE
     Route: 042
     Dates: start: 20041201, end: 20050315
  4. REFACTO [Suspect]
     Indication: FACTOR VIII DEFICIENCY
     Dosage: CURATIVE REGIMEN: FROM 250 IU 3 TIMES DAILY TO 250 IU EVERY OTHER DAY INTRAVENOUS; SEE IMAGE
     Route: 042
     Dates: start: 20050316, end: 20050929
  5. REFACTO [Suspect]
     Indication: FACTOR VIII DEFICIENCY
     Dosage: CURATIVE REGIMEN: FROM 250 IU 3 TIMES DAILY TO 250 IU EVERY OTHER DAY INTRAVENOUS; SEE IMAGE
     Route: 042
     Dates: start: 20050930, end: 20051001
  6. REFACTO [Suspect]
     Indication: FACTOR VIII DEFICIENCY
     Dosage: CURATIVE REGIMEN: FROM 250 IU 3 TIMES DAILY TO 250 IU EVERY OTHER DAY INTRAVENOUS; SEE IMAGE
     Route: 042
     Dates: start: 20051003, end: 20051003
  7. REFACTO [Suspect]
     Indication: FACTOR VIII DEFICIENCY
     Dosage: CURATIVE REGIMEN: FROM 250 IU 3 TIMES DAILY TO 250 IU EVERY OTHER DAY INTRAVENOUS; SEE IMAGE
     Route: 042
     Dates: start: 20051004

REACTIONS (3)
  - COAGULATION FACTOR VIII LEVEL DECREASED [None]
  - DRUG EFFECT DECREASED [None]
  - HAEMARTHROSIS [None]
